FAERS Safety Report 18558466 (Version 1)
Quarter: 2020Q4

REPORT INFORMATION
  Report Type: Report from Study
  Country: US (occurrence: US)
  Receive Date: 20201130
  Receipt Date: 20201130
  Transmission Date: 20210114
  Serious: Yes (Other)
  Sender: FDA-Public Use
  Company Number: US-TAKEDA-2020TUS037495

PATIENT
  Sex: Female

DRUGS (1)
  1. VEDOLIZUMAB [Suspect]
     Active Substance: VEDOLIZUMAB
     Indication: COLITIS MICROSCOPIC
     Dosage: 300 MILLIGRAM
     Route: 042

REACTIONS (8)
  - Skin atrophy [Unknown]
  - Off label use [Unknown]
  - Pneumonia [Unknown]
  - Skin haemorrhage [Unknown]
  - Increased tendency to bruise [Unknown]
  - Decreased immune responsiveness [Unknown]
  - Skin laceration [Unknown]
  - Weight decreased [Unknown]
